FAERS Safety Report 4305969-1 (Version None)
Quarter: 2004Q1

REPORT INFORMATION
  Report Type: 
  Country: None (occurrence: None)
  Receive Date: 20040224
  Receipt Date: 20040213
  Transmission Date: 20041129
  Serious: Yes (Hospitalization)
  Sender: FDA-Public Use
  Company Number: HQWYE492720JAN04

PATIENT
  Age: 51 Year
  Sex: Female
  Weight: 67 kg

DRUGS (5)
  1. LEUCOVORIN CALCIUM [Suspect]
     Indication: COLORECTAL CANCER METASTATIC
     Dosage: 100 MG/M^2 DAY 1 AND 2, INTRAVENOUS
     Route: 042
     Dates: start: 20031021, end: 20031119
  2. FLUOROURACIL [Suspect]
     Indication: COLORECTAL CANCER METASTATIC
     Dosage: 400 MG/M^2 - 600 MG/M^2 1 AND 2, INTRAVENOUS
     Route: 042
     Dates: start: 20031021, end: 20031119
  3. OXALIPLATIN [Suspect]
     Indication: COLORECTAL CANCER METASTATIC
     Dosage: 85 MG/M^2 DAY 1, INTRAVENOUS
     Route: 042
     Dates: start: 20031021, end: 20031119
  4. ATIVAN [Concomitant]
  5. COMPAZINE [Concomitant]

REACTIONS (17)
  - BETA HAEMOLYTIC STREPTOCOCCAL INFECTION [None]
  - CATHETER RELATED COMPLICATION [None]
  - DEEP VEIN THROMBOSIS [None]
  - DEHYDRATION [None]
  - DIARRHOEA [None]
  - DRUG INTOLERANCE [None]
  - HYPERCALCAEMIA [None]
  - HYPOKALAEMIA [None]
  - NAUSEA [None]
  - NORMOCHROMIC NORMOCYTIC ANAEMIA [None]
  - PULMONARY EMBOLISM [None]
  - PYREXIA [None]
  - STAPHYLOCOCCAL INFECTION [None]
  - THROMBOCYTOPENIA [None]
  - URINARY TRACT INFECTION [None]
  - VOMITING [None]
  - WHITE BLOOD CELL COUNT INCREASED [None]
